FAERS Safety Report 22813392 (Version 2)
Quarter: 2024Q3

REPORT INFORMATION
  Report Type: Spontaneous
  Country: US (occurrence: US)
  Receive Date: 20230811
  Receipt Date: 20240710
  Transmission Date: 20241016
  Serious: No
  Sender: ROCHE
  Company Number: US-ROCHE-3378453

PATIENT
  Age: 58 Year
  Sex: Male

DRUGS (1)
  1. ALECENSA [Suspect]
     Active Substance: ALECTINIB HYDROCHLORIDE
     Indication: Lung neoplasm malignant
     Route: 048
     Dates: start: 202305

REACTIONS (8)
  - Joint swelling [Unknown]
  - Sunburn [Unknown]
  - Peripheral swelling [Unknown]
  - Oedema [Unknown]
  - Myalgia [Unknown]
  - Arthralgia [Unknown]
  - Acne [Unknown]
  - Photosensitivity reaction [Unknown]
